FAERS Safety Report 20619603 (Version 1)
Quarter: 2022Q1

REPORT INFORMATION
  Report Type: Report from Study
  Country: PR (occurrence: PR)
  Receive Date: 20220322
  Receipt Date: 20220322
  Transmission Date: 20220423
  Serious: Yes (Hospitalization, Other)
  Sender: FDA-Public Use
  Company Number: PR-ADVANZ PHARMA-202203001577

PATIENT

DRUGS (30)
  1. HYDROXYCHLOROQUINE [Suspect]
     Active Substance: HYDROXYCHLOROQUINE
     Indication: Rheumatoid arthritis
     Dosage: 200 MG, PLAQUENIL
     Route: 048
     Dates: start: 2004, end: 202011
  2. HYDROXYCHLOROQUINE [Suspect]
     Active Substance: HYDROXYCHLOROQUINE
     Dosage: 200 MG, PLAQUENIL
     Route: 048
     Dates: end: 202101
  3. HYDROXYCHLOROQUINE [Suspect]
     Active Substance: HYDROXYCHLOROQUINE
     Dosage: UNK, PLAQUENIL
     Route: 048
     Dates: end: 202201
  4. HUMIRA [Suspect]
     Active Substance: ADALIMUMAB
     Indication: Rheumatoid arthritis
     Dosage: 40 MG,  HUMIRA 40MG/0.8ML
     Route: 058
     Dates: start: 200407, end: 201911
  5. HUMIRA [Suspect]
     Active Substance: ADALIMUMAB
     Indication: Rheumatoid arthritis
     Dosage: 40 MG, 1 IN 7 DAYS,  HUMIRA 40MG/0.8ML
     Route: 058
     Dates: start: 201911, end: 20200611
  6. HUMIRA [Suspect]
     Active Substance: ADALIMUMAB
     Indication: Rheumatoid arthritis
     Dosage: 40 MG,  (40 MG,1 IN 7 D)
     Route: 058
     Dates: start: 202008, end: 202110
  7. HUMIRA [Suspect]
     Active Substance: ADALIMUMAB
     Dosage: 40 MG,  (40 MG,1 IN 7 D)
     Route: 058
  8. PREDNISONE(PREDNISONE) [Concomitant]
     Indication: Inflammation
     Dosage: 5 MG
     Route: 048
     Dates: start: 2004
  9. PREDNISONE(PREDNISONE) [Concomitant]
     Dosage: 20 MG
     Route: 048
     Dates: start: 200407
  10. CELEBREX(CELECOXIB) [Concomitant]
     Indication: Antiinflammatory therapy
     Dosage: 200 MG
     Route: 048
     Dates: start: 200407, end: 2019
  11. CELEBREX(CELECOXIB) [Concomitant]
     Dosage: 200 MG
  12. NEXIUM(ESOMEPRAZOLE MAGNESIUM) [Concomitant]
     Indication: Abdominal discomfort
     Dosage: 40 MG
     Route: 048
     Dates: start: 2004
  13. METHOTREXATE [Concomitant]
     Active Substance: METHOTREXATE
     Indication: Rheumatoid arthritis
     Dosage: 5 MG
     Route: 048
     Dates: start: 200407
  14. VITAMIN B12(CYANOCOBALAMIN) [Concomitant]
     Indication: Supplementation therapy
     Dosage: 100 UG
     Route: 048
     Dates: start: 2004
  15. ACTONEL(RISEDRONATE SODIUM) [Concomitant]
     Indication: Bone disorder
     Dosage: 75 MG
     Route: 048
     Dates: start: 2004, end: 2014
  16. ACTONEL(RISEDRONATE SODIUM) [Concomitant]
     Indication: Musculoskeletal discomfort
     Dosage: 150 MG
     Route: 048
     Dates: start: 2014
  17. VITAMIN D3(COLECALCIFEROL) [Concomitant]
     Indication: Supplementation therapy
     Dosage: UNK, 1300 UNIT
     Route: 048
     Dates: start: 2004
  18. VITAMIN D3(COLECALCIFEROL) [Concomitant]
     Dosage: UNK, 1300 UNIT
     Route: 048
  19. VITAMIN D3(COLECALCIFEROL) [Concomitant]
     Dosage: 1000 IU
     Route: 048
     Dates: start: 202106
  20. FOLIC ACID(FOLIC ACID [Concomitant]
     Indication: Supplementation therapy
     Dosage: 5 MG
     Route: 048
     Dates: start: 2004
  21. FOLIC ACID(FOLIC ACID [Concomitant]
     Indication: Rheumatoid arthritis
  22. OMEGA 3-6-9(FISH OIL;TOCOPHEROL) [Concomitant]
     Indication: Supplementation therapy
     Dosage: UNK,  1 YEAR AGO
     Route: 048
  23. PROTECT PLUS SO(ACETYLCYSTEINE;CHOLINE;LECITHIN;MINERALS NOS;THIOCTIC [Concomitant]
     Indication: Vitamin B complex deficiency
     Dosage: UNK
     Route: 048
     Dates: start: 202003
  24. OMEPRAZOLE [Concomitant]
     Active Substance: OMEPRAZOLE
     Indication: Reflux gastritis
     Dosage: 40 MG
     Route: 048
     Dates: start: 2004
  25. OMEPRAZOLE [Concomitant]
     Active Substance: OMEPRAZOLE
     Indication: Abdominal discomfort
  26. ZINC(ZINC) [Concomitant]
     Indication: Product used for unknown indication
     Dosage: 250 MG
     Route: 048
     Dates: start: 202006
  27. TURMERIC(CURCUMA LONGA RHIZOME) [Concomitant]
     Indication: Antiinflammatory therapy
     Dosage: 500 MG
     Route: 048
     Dates: start: 2020
  28. DICLOFENAC(DICLOFENAC) [Concomitant]
     Indication: Vein disorder
     Dosage: UNK
     Route: 061
     Dates: start: 2020
  29. MODERNA COVID-19 VACCINE (ELASOMERAN) [Concomitant]
     Indication: COVID-19 immunisation
     Dosage: 1 IN 1 DAY
     Route: 030
     Dates: start: 20210227
  30. MODERNA COVID-19 VACCINE (ELASOMERAN) [Concomitant]
     Dosage: 1 IN 1 DAY
     Route: 030
     Dates: start: 20210327

REACTIONS (21)
  - Cardiac failure [Recovering/Resolving]
  - Blindness [Recovering/Resolving]
  - Pulmonary fibrosis [Recovering/Resolving]
  - SARS-CoV-2 test positive [Recovered/Resolved]
  - Pulmonary hypertension [Recovering/Resolving]
  - Retinal disorder [Not Recovered/Not Resolved]
  - Pathological tooth fracture [Recovering/Resolving]
  - Asthenia [Recovering/Resolving]
  - Somnolence [Recovering/Resolving]
  - Red blood cell sedimentation rate increased [Recovering/Resolving]
  - Dental caries [Recovering/Resolving]
  - Arthritis [Recovering/Resolving]
  - Chronic obstructive pulmonary disease [Recovering/Resolving]
  - Aortic elongation [Recovering/Resolving]
  - Dyspnoea [Recovering/Resolving]
  - Weight increased [Recovering/Resolving]
  - Ageusia [Recovered/Resolved]
  - Pyrexia [Recovered/Resolved]
  - Dehydration [Recovered/Resolved]
  - Decreased appetite [Recovered/Resolved]
  - Weight decreased [Recovered/Resolved]

NARRATIVE: CASE EVENT DATE: 20150101
